FAERS Safety Report 4403199-6 (Version None)
Quarter: 2004Q3

REPORT INFORMATION
  Report Type: 
  Country: None (occurrence: None)
  Receive Date: 20040721
  Receipt Date: 20040312
  Transmission Date: 20050211
  Serious: No
  Sender: FDA-Public Use
  Company Number: US-GLAXOSMITHKLINE-A0502585A

PATIENT
  Sex: Female

DRUGS (5)
  1. IMITREX [Suspect]
     Indication: MIGRAINE
     Dosage: 50MG PER DAY
     Route: 048
     Dates: start: 19970101
  2. INDERAL [Concomitant]
     Dosage: 20MG TWICE PER DAY
  3. XANAX [Concomitant]
     Dosage: 1MG PER DAY
  4. NORTRIPTYLINE HCL [Concomitant]
     Dosage: 50MG PER DAY
  5. ESTROGEN [Concomitant]

REACTIONS (3)
  - DYSGEUSIA [None]
  - HEADACHE [None]
  - NAUSEA [None]
